FAERS Safety Report 4829329-X (Version None)
Quarter: 2005Q4

REPORT INFORMATION
  Report Type: 
  Country: None (occurrence: None)
  Receive Date: 20051115
  Receipt Date: 20051115
  Transmission Date: 20060501
  Serious: Yes (Hospitalization)
  Sender: FDA-Public Use
  Company Number: None

PATIENT
  Age: 58 Year
  Sex: Male
  Weight: 92.9874 kg

DRUGS (5)
  1. WARFARIN   5 MG [Suspect]
     Indication: PULMONARY EMBOLISM
     Dosage: 45MG/WEEK, ORAL
     Route: 048
     Dates: start: 20031101, end: 20050824
  2. GARLIC [Concomitant]
  3. MILK THISTLE [Concomitant]
  4. GINGER [Concomitant]
  5. FOLIC ACID [Concomitant]

REACTIONS (8)
  - ALCOHOL USE [None]
  - ALCOHOL WITHDRAWAL SYNDROME [None]
  - AMNESIA [None]
  - CONTUSION [None]
  - HAEMORRHAGE [None]
  - INTERNATIONAL NORMALISED RATIO INCREASED [None]
  - LOSS OF CONSCIOUSNESS [None]
  - OEDEMA PERIPHERAL [None]
